FAERS Safety Report 17870880 (Version 1)
Quarter: 2020Q2

REPORT INFORMATION
  Report Type: Spontaneous
  Country: US (occurrence: US)
  Receive Date: 20200605
  Receipt Date: 20200605
  Transmission Date: 20200714
  Serious: Yes (Other)
  Sender: FDA-Public Use
  Company Number: None

PATIENT
  Age: 72 Year
  Sex: Male
  Weight: 88.6 kg

DRUGS (9)
  1. THIAMINE 100MG [Concomitant]
     Dates: start: 20200521, end: 20200529
  2. MULTIVITAMIN WITH MINERALS [Concomitant]
     Active Substance: MINERALS\VITAMINS
     Dates: start: 20200521, end: 20200529
  3. ALBUTEROL NEDS [Concomitant]
     Dates: start: 20200516, end: 20200523
  4. ATORVASTATIN 40MG [Suspect]
     Active Substance: ATORVASTATIN
     Dates: start: 20200523, end: 20200528
  5. REMDESIVIR. [Suspect]
     Active Substance: REMDESIVIR
     Indication: COVID-19
     Dates: start: 20200518, end: 20200522
  6. FUROSEMIDE 20MG [Concomitant]
     Active Substance: FUROSEMIDE
     Dosage: ?          OTHER ROUTE:IV?
     Dates: start: 20200518, end: 20200529
  7. LANTUS [Concomitant]
     Active Substance: INSULIN GLARGINE
     Dates: start: 20200524, end: 20200529
  8. PANTOPRAZOLE 40MG [Suspect]
     Active Substance: PANTOPRAZOLE SODIUM
     Dates: start: 20200517, end: 20200529
  9. ALBUMIN [Concomitant]
     Active Substance: ALBUMIN HUMAN
     Dates: start: 20200522, end: 20200529

REACTIONS (18)
  - Chest pain [None]
  - Atrial fibrillation [None]
  - Aspartate aminotransferase increased [None]
  - Septic shock [None]
  - Renal failure [None]
  - Interleukin level increased [None]
  - Hypotension [None]
  - Blood lactic acid increased [None]
  - Candida test positive [None]
  - Oxygen saturation decreased [None]
  - COVID-19 pneumonia [None]
  - Ammonia increased [None]
  - Body temperature increased [None]
  - Acute respiratory distress syndrome [None]
  - Metabolic acidosis [None]
  - Lung opacity [None]
  - Fluid overload [None]
  - Haemodynamic instability [None]
